FAERS Safety Report 13654362 (Version 1)
Quarter: 2017Q2

REPORT INFORMATION
  Report Type: Report from Study
  Country: None (occurrence: BR)
  Receive Date: 20170615
  Receipt Date: 20170615
  Transmission Date: 20170830
  Serious: Yes (Hospitalization)
  Sender: FDA-Public Use
  Company Number: BR-ABBVIE-17K-020-2006733-00

PATIENT
  Age: 23 Year
  Sex: Female
  Weight: 66 kg

DRUGS (7)
  1. MIRENA [Concomitant]
     Active Substance: LEVONORGESTREL
     Indication: PRODUCT USED FOR UNKNOWN INDICATION
     Route: 015
     Dates: start: 201610
  2. HUMIRA [Suspect]
     Active Substance: ADALIMUMAB
     Route: 058
     Dates: end: 2016
  3. AZATHIOPRINE. [Concomitant]
     Active Substance: AZATHIOPRINE
     Indication: CROHN^S DISEASE
     Route: 048
     Dates: start: 2012
  4. HUMIRA [Suspect]
     Active Substance: ADALIMUMAB
     Route: 058
     Dates: start: 2016
  5. HUMIRA [Suspect]
     Active Substance: ADALIMUMAB
     Indication: CROHN^S DISEASE
     Dosage: INDUCTION DOSE
     Route: 058
     Dates: start: 20140624, end: 20140624
  6. HUMIRA [Suspect]
     Active Substance: ADALIMUMAB
     Dosage: INDUCTION DOSE
     Route: 058
  7. HUMIRA [Suspect]
     Active Substance: ADALIMUMAB
     Route: 058

REACTIONS (4)
  - Ascites [Recovered/Resolved]
  - Gastrointestinal fistula [Recovering/Resolving]
  - Crohn^s disease [Recovering/Resolving]
  - Ascites [Recovered/Resolved]

NARRATIVE: CASE EVENT DATE: 201703
